FAERS Safety Report 6147799-4 (Version None)
Quarter: 2009Q2

REPORT INFORMATION
  Report Type: 
  Country: None (occurrence: None)
  Receive Date: 20090402
  Receipt Date: 20090213
  Transmission Date: 20091009
  Serious: No
  Sender: FDA-Public Use
  Company Number: 1000003971

PATIENT
  Age: 73 Year
  Sex: Male

DRUGS (6)
  1. BYSTOLIC [Suspect]
     Indication: HYPERTENSION
     Dosage: 5, (5, 1 IN 1 D) ORAL
     Route: 048
     Dates: start: 20090201, end: 20090213
  2. RAMIPRIL [Concomitant]
  3. LIPITOR [Concomitant]
  4. PLAVIX [Concomitant]
  5. LISINOPRIL [Concomitant]
  6. CATAPRES [Concomitant]

REACTIONS (1)
  - HYPERSENSITIVITY [None]
